FAERS Safety Report 8838124 (Version 1)
Quarter: 2012Q4

REPORT INFORMATION
  Report Type: 
  Country: JP (occurrence: JP)
  Receive Date: 20121012
  Receipt Date: 20121012
  Transmission Date: 20130627
  Serious: Yes (Other)
  Sender: FDA-Public Use
  Company Number: JP-ASTELLAS-2012JP009510

PATIENT
  Age: 36 Year
  Sex: Female

DRUGS (4)
  1. PROGRAF [Suspect]
     Indication: POLYMYOSITIS
     Route: 065
  2. PREDNISOLONE [Concomitant]
     Indication: POLYMYOSITIS
     Dosage: 35 mg, Unknown/D
     Route: 065
  3. PREDNISOLONE [Concomitant]
     Dosage: 20 mg, Unknown/D
     Route: 065
  4. CYCLOSPORINE [Concomitant]
     Indication: POLYMYOSITIS
     Route: 065

REACTIONS (2)
  - Drug ineffective for unapproved indication [Unknown]
  - Polymyositis [Recovering/Resolving]
